FAERS Safety Report 9699201 (Version 1)
Quarter: 2013Q4

REPORT INFORMATION
  Report Type: Spontaneous
  Country: US (occurrence: US)
  Receive Date: 20131120
  Receipt Date: 20131120
  Transmission Date: 20140711
  Serious: No
  Sender: FDA-Public Use
  Company Number: US-GILEAD-2008-0015121

PATIENT
  Age: 71 Year
  Sex: Female
  Weight: 58.59 kg

DRUGS (9)
  1. LETAIRIS [Suspect]
     Indication: PULMONARY ARTERIAL HYPERTENSION
     Route: 048
     Dates: start: 20080118
  2. NIFEDIPINE [Concomitant]
     Indication: ESSENTIAL HYPERTENSION
  3. ACIPHEX [Concomitant]
     Indication: GASTROOESOPHAGEAL REFLUX DISEASE
  4. GABAPENTIN [Concomitant]
     Indication: EPILEPSY
  5. LASIX [Concomitant]
     Indication: PULMONARY ARTERIAL HYPERTENSION
  6. COLACE [Concomitant]
     Indication: CONSTIPATION
  7. SPIRONOLACTONE [Concomitant]
     Indication: FLUID RETENTION
  8. AMITRYPTYLINE [Concomitant]
     Indication: DEPRESSION
  9. CITALOPRAM [Concomitant]
     Indication: DEPRESSION

REACTIONS (1)
  - Dyspnoea [Not Recovered/Not Resolved]
